FAERS Safety Report 9104874 (Version 1)
Quarter: 2013Q1

REPORT INFORMATION
  Report Type: Report from Study
  Country: US (occurrence: US)
  Receive Date: 20130219
  Receipt Date: 20130219
  Transmission Date: 20140127
  Serious: Yes (Hospitalization)
  Sender: FDA-Public Use
  Company Number: US-ACTELION-A-NJ2013-78995

PATIENT
  Age: 54 Year
  Sex: Female

DRUGS (3)
  1. TRACLEER [Suspect]
     Indication: PORTOPULMONARY HYPERTENSION
     Dosage: UNK
     Route: 048
     Dates: start: 20080807
  2. ADCIRCA [Concomitant]
  3. TYVASO [Concomitant]

REACTIONS (3)
  - Blood potassium increased [Unknown]
  - Oropharyngeal pain [Not Recovered/Not Resolved]
  - Malaise [Unknown]
